FAERS Safety Report 5103233-4 (Version None)
Quarter: 2006Q3

REPORT INFORMATION
  Report Type: 
  Country: None (occurrence: None)
  Receive Date: 20060908
  Receipt Date: 20060901
  Transmission Date: 20061208
  Serious: Yes (Death, Other)
  Sender: FDA-Public Use
  Company Number: PR-2006-025696

PATIENT
  Age: 69 Year
  Sex: Male
  Weight: 68 kg

DRUGS (34)
  1. LEUKINE [Suspect]
     Indication: ANAPLASTIC LARGE CELL LYMPHOMA T- AND NULL-CELL TYPES
     Dosage: 75 UGD#2 OF CYCLE, MWF FOR 12 DAYS, SC
     Route: 058
     Dates: start: 20060616, end: 20060601
  2. LEUKINE [Suspect]
     Indication: ANAPLASTIC LARGE CELL LYMPHOMA T- AND NULL-CELL TYPES
     Dosage: 75 UGD#2 OF CYCLE, MWF FOR 12 DAYS, SC
     Route: 058
     Dates: start: 20060630, end: 20060701
  3. LEUKINE [Suspect]
     Indication: ANAPLASTIC LARGE CELL LYMPHOMA T- AND NULL-CELL TYPES
     Dosage: 75 UGD#2 OF CYCLE, MWF FOR 12 DAYS, SC
     Route: 058
     Dates: start: 20060714, end: 20060701
  4. LEUKINE [Suspect]
     Indication: ANAPLASTIC LARGE CELL LYMPHOMA T- AND NULL-CELL TYPES
     Dosage: 75 UGD#2 OF CYCLE, MWF FOR 12 DAYS, SC
     Route: 058
     Dates: start: 20060728, end: 20060801
  5. LEUKINE [Suspect]
     Indication: ANAPLASTIC LARGE CELL LYMPHOMA T- AND NULL-CELL TYPES
     Dosage: 75 UGD#2 OF CYCLE, MWF FOR 12 DAYS, SC
     Route: 058
     Dates: start: 20060811, end: 20060801
  6. LEUKINE [Suspect]
     Indication: ANAPLASTIC LARGE CELL LYMPHOMA T- AND NULL-CELL TYPES
     Dosage: 75 UGD#2 OF CYCLE, MWF FOR 12 DAYS, SC
     Route: 058
     Dates: start: 20060825
  7. CYCLOPHOSPHAMIDE [Suspect]
     Indication: ANAPLASTIC LARGE CELL LYMPHOMA T- AND NULL-CELL TYPES
     Dosage: 750 M2/M2, D#1 OR EACH CYCLE, INTRAVENOUS ; 750 MG/M2 D#1 OF EACH CYCLE, INTRAVENOUS
     Route: 042
     Dates: start: 20060615, end: 20060615
  8. CYCLOPHOSPHAMIDE [Suspect]
     Indication: ANAPLASTIC LARGE CELL LYMPHOMA T- AND NULL-CELL TYPES
     Dosage: 750 M2/M2, D#1 OR EACH CYCLE, INTRAVENOUS ; 750 MG/M2 D#1 OF EACH CYCLE, INTRAVENOUS
     Route: 042
     Dates: start: 20060629, end: 20060629
  9. CYCLOPHOSPHAMIDE [Suspect]
     Indication: ANAPLASTIC LARGE CELL LYMPHOMA T- AND NULL-CELL TYPES
     Dosage: 750 M2/M2, D#1 OR EACH CYCLE, INTRAVENOUS ; 750 MG/M2 D#1 OF EACH CYCLE, INTRAVENOUS
     Route: 042
     Dates: start: 20060713, end: 20060713
  10. CYCLOPHOSPHAMIDE [Suspect]
     Indication: ANAPLASTIC LARGE CELL LYMPHOMA T- AND NULL-CELL TYPES
     Dosage: 750 M2/M2, D#1 OR EACH CYCLE, INTRAVENOUS ; 750 MG/M2 D#1 OF EACH CYCLE, INTRAVENOUS
     Route: 042
     Dates: start: 20060727, end: 20060727
  11. CYCLOPHOSPHAMIDE [Suspect]
     Indication: ANAPLASTIC LARGE CELL LYMPHOMA T- AND NULL-CELL TYPES
     Dosage: 750 M2/M2, D#1 OR EACH CYCLE, INTRAVENOUS ; 750 MG/M2 D#1 OF EACH CYCLE, INTRAVENOUS
     Route: 042
     Dates: start: 20060810, end: 20060810
  12. CYCLOPHOSPHAMIDE [Suspect]
     Indication: ANAPLASTIC LARGE CELL LYMPHOMA T- AND NULL-CELL TYPES
     Dosage: 750 M2/M2, D#1 OR EACH CYCLE, INTRAVENOUS ; 750 MG/M2 D#1 OF EACH CYCLE, INTRAVENOUS
     Route: 042
     Dates: start: 20060824, end: 20060824
  13. DOXORUBICIN HCL [Suspect]
     Indication: ANAPLASTIC LARGE CELL LYMPHOMA T- AND NULL-CELL TYPES
     Dosage: 50 MG/M2, D#1 OF EACH CYCLE, INTRAVENOUS; 50 NG/M2, D#1 OF EACH CYCLE, INTRAVENOUS ; 50 MG/M2, D#1 O
     Route: 042
     Dates: start: 20060615, end: 20060615
  14. DOXORUBICIN HCL [Suspect]
     Indication: ANAPLASTIC LARGE CELL LYMPHOMA T- AND NULL-CELL TYPES
     Dosage: 50 MG/M2, D#1 OF EACH CYCLE, INTRAVENOUS; 50 NG/M2, D#1 OF EACH CYCLE, INTRAVENOUS ; 50 MG/M2, D#1 O
     Route: 042
     Dates: start: 20060629, end: 20060629
  15. DOXORUBICIN HCL [Suspect]
     Indication: ANAPLASTIC LARGE CELL LYMPHOMA T- AND NULL-CELL TYPES
     Dosage: 50 MG/M2, D#1 OF EACH CYCLE, INTRAVENOUS; 50 NG/M2, D#1 OF EACH CYCLE, INTRAVENOUS ; 50 MG/M2, D#1 O
     Route: 042
     Dates: start: 20060713, end: 20060713
  16. DOXORUBICIN HCL [Suspect]
     Indication: ANAPLASTIC LARGE CELL LYMPHOMA T- AND NULL-CELL TYPES
     Dosage: 50 MG/M2, D#1 OF EACH CYCLE, INTRAVENOUS; 50 NG/M2, D#1 OF EACH CYCLE, INTRAVENOUS ; 50 MG/M2, D#1 O
     Route: 042
     Dates: start: 20060727, end: 20060727
  17. DOXORUBICIN HCL [Suspect]
     Indication: ANAPLASTIC LARGE CELL LYMPHOMA T- AND NULL-CELL TYPES
     Dosage: 50 MG/M2, D#1 OF EACH CYCLE, INTRAVENOUS; 50 NG/M2, D#1 OF EACH CYCLE, INTRAVENOUS ; 50 MG/M2, D#1 O
     Route: 042
     Dates: start: 20060810, end: 20060810
  18. DOXORUBICIN HCL [Suspect]
     Indication: ANAPLASTIC LARGE CELL LYMPHOMA T- AND NULL-CELL TYPES
     Dosage: 50 MG/M2, D#1 OF EACH CYCLE, INTRAVENOUS; 50 NG/M2, D#1 OF EACH CYCLE, INTRAVENOUS ; 50 MG/M2, D#1 O
     Route: 042
     Dates: start: 20060824, end: 20060824
  19. VINCRISTINE [Suspect]
     Indication: ANAPLASTIC LARGE CELL LYMPHOMA T- AND NULL-CELL TYPES
     Dosage: 1.4 MG/M2, D#1 OF EACH CYCLE, INTRAVENOUS ; 1.4 MG/M2, D#1 OF EACH CYCLE, INTRAVENOUS ; 1.4 MG/M2, D
     Route: 042
     Dates: start: 20060615, end: 20060615
  20. VINCRISTINE [Suspect]
     Indication: ANAPLASTIC LARGE CELL LYMPHOMA T- AND NULL-CELL TYPES
     Dosage: 1.4 MG/M2, D#1 OF EACH CYCLE, INTRAVENOUS ; 1.4 MG/M2, D#1 OF EACH CYCLE, INTRAVENOUS ; 1.4 MG/M2, D
     Route: 042
     Dates: start: 20060629, end: 20060629
  21. VINCRISTINE [Suspect]
     Indication: ANAPLASTIC LARGE CELL LYMPHOMA T- AND NULL-CELL TYPES
     Dosage: 1.4 MG/M2, D#1 OF EACH CYCLE, INTRAVENOUS ; 1.4 MG/M2, D#1 OF EACH CYCLE, INTRAVENOUS ; 1.4 MG/M2, D
     Route: 042
     Dates: start: 20060713, end: 20060713
  22. VINCRISTINE [Suspect]
     Indication: ANAPLASTIC LARGE CELL LYMPHOMA T- AND NULL-CELL TYPES
     Dosage: 1.4 MG/M2, D#1 OF EACH CYCLE, INTRAVENOUS ; 1.4 MG/M2, D#1 OF EACH CYCLE, INTRAVENOUS ; 1.4 MG/M2, D
     Route: 042
     Dates: start: 20060727, end: 20060727
  23. VINCRISTINE [Suspect]
     Indication: ANAPLASTIC LARGE CELL LYMPHOMA T- AND NULL-CELL TYPES
     Dosage: 1.4 MG/M2, D#1 OF EACH CYCLE, INTRAVENOUS ; 1.4 MG/M2, D#1 OF EACH CYCLE, INTRAVENOUS ; 1.4 MG/M2, D
     Route: 042
     Dates: start: 20060810, end: 20060810
  24. VINCRISTINE [Suspect]
     Indication: ANAPLASTIC LARGE CELL LYMPHOMA T- AND NULL-CELL TYPES
     Dosage: 1.4 MG/M2, D#1 OF EACH CYCLE, INTRAVENOUS ; 1.4 MG/M2, D#1 OF EACH CYCLE, INTRAVENOUS ; 1.4 MG/M2, D
     Route: 042
     Dates: start: 20060824, end: 20060824
  25. NEULASTA [Suspect]
     Indication: ANAPLASTIC LARGE CELL LYMPHOMA T- AND NULL-CELL TYPES
     Dosage: 3 MG/M2, D#2 OF EACH CYCLE, SUBCUTANEOUS ; 3 MG/M2, D#2 OF EACH CYCLE, SUBCUTANEOUS ; 3 MG/M2 OF
     Route: 058
     Dates: start: 20060616, end: 20060616
  26. NEULASTA [Suspect]
     Indication: ANAPLASTIC LARGE CELL LYMPHOMA T- AND NULL-CELL TYPES
     Dosage: 3 MG/M2, D#2 OF EACH CYCLE, SUBCUTANEOUS ; 3 MG/M2, D#2 OF EACH CYCLE, SUBCUTANEOUS ; 3 MG/M2 OF
     Route: 058
     Dates: start: 20060630, end: 20060630
  27. NEULASTA [Suspect]
     Indication: ANAPLASTIC LARGE CELL LYMPHOMA T- AND NULL-CELL TYPES
     Dosage: 3 MG/M2, D#2 OF EACH CYCLE, SUBCUTANEOUS ; 3 MG/M2, D#2 OF EACH CYCLE, SUBCUTANEOUS ; 3 MG/M2 OF
     Route: 058
     Dates: start: 20060714, end: 20060714
  28. NEULASTA [Suspect]
     Indication: ANAPLASTIC LARGE CELL LYMPHOMA T- AND NULL-CELL TYPES
     Dosage: 3 MG/M2, D#2 OF EACH CYCLE, SUBCUTANEOUS ; 3 MG/M2, D#2 OF EACH CYCLE, SUBCUTANEOUS ; 3 MG/M2 OF
     Route: 058
     Dates: start: 20060728, end: 20060728
  29. NEULASTA [Suspect]
     Indication: ANAPLASTIC LARGE CELL LYMPHOMA T- AND NULL-CELL TYPES
     Dosage: 3 MG/M2, D#2 OF EACH CYCLE, SUBCUTANEOUS ; 3 MG/M2, D#2 OF EACH CYCLE, SUBCUTANEOUS ; 3 MG/M2 OF
     Route: 058
     Dates: start: 20060811, end: 20060811
  30. NEULASTA [Suspect]
     Indication: ANAPLASTIC LARGE CELL LYMPHOMA T- AND NULL-CELL TYPES
     Dosage: 3 MG/M2, D#2 OF EACH CYCLE, SUBCUTANEOUS ; 3 MG/M2, D#2 OF EACH CYCLE, SUBCUTANEOUS ; 3 MG/M2 OF
     Route: 058
     Dates: start: 20060825, end: 20060825
  31. PERCOCET [Concomitant]
  32. OXYCONTIN [Concomitant]
  33. PREDNISONE [Concomitant]
  34. NEURONTIN [Concomitant]

REACTIONS (3)
  - DYSPNOEA [None]
  - PYREXIA [None]
  - SUDDEN DEATH [None]
